FAERS Safety Report 6414908-9 (Version None)
Quarter: 2009Q4

REPORT INFORMATION
  Report Type: 
  Country: None (occurrence: None)
  Receive Date: 20091026
  Receipt Date: 20090427
  Transmission Date: 20100525
  Serious: No
  Sender: FDA-Public Use
  Company Number: US-ABBOTT-09P-163-0570236-00

PATIENT
  Age: 42 Year
  Sex: Female

DRUGS (3)
  1. LUPRON DEPOT [Suspect]
     Indication: ENDOMETRIOSIS
     Route: 050
     Dates: start: 20080801, end: 20080801
  2. LUPRON DEPOT [Suspect]
     Route: 050
  3. LUPRON DEPOT [Suspect]
     Indication: ENDOMETRIOSIS
     Dates: start: 20080901

REACTIONS (2)
  - OESTRADIOL ABNORMAL [None]
  - VAGINAL HAEMORRHAGE [None]
